FAERS Safety Report 5306387-X (Version None)
Quarter: 2007Q2

REPORT INFORMATION
  Report Type: 
  Country: None (occurrence: None)
  Receive Date: 20070419
  Receipt Date: 20070404
  Transmission Date: 20071010
  Serious: Yes (Other)
  Sender: FDA-Public Use
  Company Number: 012524

PATIENT
  Age: 41 Year
  Sex: Male

DRUGS (1)
  1. ANTABUSE [Suspect]

REACTIONS (7)
  - BLEPHAROSPASM [None]
  - CONFUSIONAL STATE [None]
  - COORDINATION ABNORMAL [None]
  - DRUG TOXICITY [None]
  - OPHTHALMOPLEGIA [None]
  - PARKINSONISM [None]
  - WERNICKE'S ENCEPHALOPATHY [None]
